FAERS Safety Report 6396648-8 (Version None)
Quarter: 2009Q4

REPORT INFORMATION
  Report Type: 
  Country: None (occurrence: None)
  Receive Date: 20091012
  Receipt Date: 20091005
  Transmission Date: 20100525
  Serious: Yes (Hospitalization)
  Sender: FDA-Public Use
  Company Number: DE-AMGEN-UK362998

PATIENT
  Sex: Female

DRUGS (8)
  1. NEULASTA [Suspect]
     Indication: CHEMOTHERAPY
     Route: 058
     Dates: start: 20090827, end: 20090827
  2. CYCLOPHOSPHAMIDE [Concomitant]
     Route: 065
  3. DOCETAXEL [Concomitant]
     Route: 065
  4. DOXORUBICIN HCL [Concomitant]
     Route: 065
  5. DEXAMETHASONE 0.5MG TAB [Concomitant]
     Dates: start: 20090825, end: 20090826
  6. TROPISETRON [Concomitant]
     Route: 042
     Dates: start: 20090826, end: 20090826
  7. EMEND [Concomitant]
     Dates: start: 20090826, end: 20090826
  8. UROMITEXAN [Concomitant]
     Dates: start: 20090826, end: 20090826

REACTIONS (3)
  - DRUG EFFECT DELAYED [None]
  - INCORRECT STORAGE OF DRUG [None]
  - NEUTROPHIL COUNT DECREASED [None]
